FAERS Safety Report 19118436 (Version 1)
Quarter: 2021Q2

REPORT INFORMATION
  Report Type: Spontaneous
  Country: US (occurrence: US)
  Receive Date: 20210409
  Receipt Date: 20210409
  Transmission Date: 20210717
  Serious: No
  Sender: FDA-Public Use
  Company Number: US-009507513-2104USA001682

PATIENT
  Age: 1 Day
  Sex: Female

DRUGS (6)
  1. ZIDOVUDINE. [Suspect]
     Active Substance: ZIDOVUDINE
     Dosage: 450 DOSAGE FORM, QD, SECOND COURSE, DURATION: { 1 WEEK
     Route: 064
  2. RITONAVIR. [Suspect]
     Active Substance: RITONAVIR
     Dosage: 100 DOSAGE FORM, QD, FIRST COURSE
     Route: 064
  3. MARAVIROC [Suspect]
     Active Substance: MARAVIROC
     Dosage: 2 DOSAGE FORM, QD, FIRST COURSE
     Route: 064
  4. ISENTRESS [Suspect]
     Active Substance: RALTEGRAVIR POTASSIUM
     Dosage: 2 DOSAGE FORM, QD, FIRST COURSE
     Route: 064
  5. DARUNAVIR [Suspect]
     Active Substance: DARUNAVIR
     Dosage: 800 DOSAGE FORM, QD,FIRST COURSE
     Route: 064
  6. ZIDOVUDINE. [Suspect]
     Active Substance: ZIDOVUDINE
     Dosage: 2 DOSAGE FORM, QD, FIRST COURSE
     Route: 064

REACTIONS (2)
  - Foetal exposure during pregnancy [Recovered/Resolved]
  - Small for dates baby [Unknown]
